FAERS Safety Report 19976204 (Version 1)
Quarter: 2021Q4

REPORT INFORMATION
  Report Type: Report from Study
  Country: FR (occurrence: FR)
  Receive Date: 20211020
  Receipt Date: 20211020
  Transmission Date: 20220303
  Serious: Yes (Hospitalization)
  Sender: FDA-Public Use
  Company Number: FR-SHIRE-FR201802374

PATIENT
  Sex: Male

DRUGS (7)
  1. METHOTREXATE [Suspect]
     Active Substance: METHOTREXATE
     Indication: Acute lymphocytic leukaemia
     Dosage: 12 MILLIGRAM, QD (12 MG, 1X/DAY:QD)
     Route: 037
     Dates: start: 20170228, end: 20170428
  2. MERCAPTOPURINE [Suspect]
     Active Substance: MERCAPTOPURINE
     Indication: Acute lymphocytic leukaemia
     Dosage: 44 MILLIGRAM, QD (44 MG, 1X/DAY:QD)
     Route: 048
     Dates: start: 20170227, end: 20170518
  3. METHOTREXATE [Suspect]
     Active Substance: METHOTREXATE
     Indication: Acute lymphocytic leukaemia
     Dosage: 22.5 MILLIGRAM, QD (22.5 MG, 1X/DAY:QD)
     Route: 048
     Dates: start: 20170306, end: 20170515
  4. VINCRISTINE [Suspect]
     Active Substance: VINCRISTINE
     Indication: Acute lymphocytic leukaemia
     Dosage: 1.2 MILLIGRAM, QD (1.2 MG, 1X/DAY:QD)
     Route: 042
     Dates: start: 20170227, end: 20170504
  5. DEXAMETHASONE [Suspect]
     Active Substance: DEXAMETHASONE
     Indication: Acute lymphocytic leukaemia
     Dosage: 5 MILLIGRAM, QD (5 MG, 1X/DAY:QD)
     Route: 048
     Dates: start: 20170227, end: 20170501
  6. PEGASPARGASE [Suspect]
     Active Substance: PEGASPARGASE
     Indication: Acute lymphocytic leukaemia
     Dosage: 1050 IU, 1X/DAY:QD
     Route: 042
     Dates: start: 20170306, end: 20170504
  7. BACTRIM [Concomitant]
     Active Substance: SULFAMETHOXAZOLE\TRIMETHOPRIM
     Indication: Product used for unknown indication
     Dosage: UNK

REACTIONS (2)
  - Pyrexia [Recovered/Resolved]
  - General physical health deterioration [Recovered/Resolved]

NARRATIVE: CASE EVENT DATE: 20170423
